FAERS Safety Report 20774649 (Version 1)
Quarter: 2022Q2

REPORT INFORMATION
  Report Type: Spontaneous
  Country: US (occurrence: US)
  Receive Date: 20220502
  Receipt Date: 20220502
  Transmission Date: 20220721
  Serious: No
  Sender: FDA-Public Use
  Company Number: US-ABBVIE-22K-163-4231269-00

PATIENT
  Age: 75 Year
  Sex: Female

DRUGS (2)
  1. CREON [Suspect]
     Active Substance: PANCRELIPASE AMYLASE\PANCRELIPASE LIPASE\PANCRELIPASE PROTEASE
     Indication: Product used for unknown indication
     Dosage: ONE CAPSULE WITH EACH MEAL AND NONE FOR SNACKS
     Route: 048
  2. CREON [Suspect]
     Active Substance: PANCRELIPASE AMYLASE\PANCRELIPASE LIPASE\PANCRELIPASE PROTEASE
     Dosage: TWO CAPSULES WITH EACH MEAL AND NONE FOR SNACKS
     Route: 048
     Dates: start: 20211202

REACTIONS (7)
  - Abdominal distension [Unknown]
  - Diarrhoea [Unknown]
  - Pruritus [Unknown]
  - Rash [Unknown]
  - Constipation [Unknown]
  - Flatulence [Unknown]
  - Cough [Unknown]
